FAERS Safety Report 9663953 (Version 1)
Quarter: 2013Q4

REPORT INFORMATION
  Report Type: Spontaneous
  Country: US (occurrence: None)
  Receive Date: 20131030
  Receipt Date: 20131030
  Transmission Date: 20140711
  Serious: Yes (Other)
  Sender: FDA-Public Use
  Company Number: None

PATIENT
  Age: 48 Year
  Sex: Male
  Weight: 88 kg

DRUGS (6)
  1. BRIMONIDINE [Suspect]
     Indication: GLAUCOMA
     Route: 047
     Dates: start: 20130418, end: 20130515
  2. BRIMONIDINE [Suspect]
     Indication: INTRAOCULAR PRESSURE TEST ABNORMAL
     Route: 047
     Dates: start: 20130418, end: 20130515
  3. LISINOPRIL-HYDROCHLOROTHIAZIDE [Concomitant]
  4. DORZOLAMIDE [Concomitant]
  5. LATANOPROST [Concomitant]
  6. ASPIRIN [Concomitant]

REACTIONS (2)
  - Ocular hyperaemia [None]
  - Eye disorder [None]
